FAERS Safety Report 4599061-9 (Version None)
Quarter: 2005Q1

REPORT INFORMATION
  Report Type: 
  Country: None (occurrence: None)
  Receive Date: 20050302
  Receipt Date: 20050214
  Transmission Date: 20050727
  Serious: Yes (Disabling)
  Sender: FDA-Public Use
  Company Number: 200501602

PATIENT
  Sex: Male

DRUGS (1)
  1. PRED FORTE [Suspect]

REACTIONS (3)
  - EYE OPERATION COMPLICATION [None]
  - MEDICATION ERROR [None]
  - VISUAL DISTURBANCE [None]
